FAERS Safety Report 8140784-2 (Version None)
Quarter: 2012Q1

REPORT INFORMATION
  Report Type: 
  Country: None (occurrence: None)
  Receive Date: 20120216
  Receipt Date: 20120206
  Transmission Date: 20120608
  Serious: Yes (Death)
  Sender: FDA-Public Use
  Company Number: NO-BRISTOL-MYERS SQUIBB COMPANY-16016792

PATIENT
  Age: 72 Year
  Sex: Female

DRUGS (11)
  1. METOPROLOL SUCCINATE [Concomitant]
  2. DIGITOXIN INJ [Concomitant]
     Dosage: NOT WEDNESDAY AMD SUNDAY
  3. WARFARIN SODIUM [Concomitant]
  4. VIVAL [Concomitant]
  5. ZYRTEC [Concomitant]
  6. DIURAL [Concomitant]
  7. ALLOPURINOL [Concomitant]
     Dosage: ALLOPUR
  8. GLUCOPHAGE [Suspect]
     Indication: TYPE 2 DIABETES MELLITUS
     Dosage: 1000MG
     Route: 048
     Dates: end: 20090701
  9. FLUTICASONE PROPIONATE/SALMETEROL [Concomitant]
     Indication: CHRONIC OBSTRUCTIVE PULMONARY DISEASE
     Dosage: SERETIDE DISKUS
  10. LEVOTHYROXINE SODIUM [Concomitant]
  11. ZESTRIL [Interacting]
     Route: 048
     Dates: end: 20090701

REACTIONS (3)
  - LACTIC ACIDOSIS [None]
  - CARDIAC ARREST [None]
  - RENAL FAILURE [None]
